FAERS Safety Report 8862496 (Version 2)
Quarter: 2012Q4

REPORT INFORMATION
  Report Type: 
  Country: GB (occurrence: GB)
  Receive Date: 20121026
  Receipt Date: 20121105
  Transmission Date: 20130627
  Serious: Yes (Hospitalization, Other)
  Sender: FDA-Public Use
  Company Number: PHFR2012GB005552

PATIENT
  Age: 20 Year
  Sex: Female

DRUGS (16)
  1. GLIVEC [Suspect]
     Indication: PULMONARY ARTERIAL HYPERTENSION
     Dosage: 200 mg,daily but 1/2
     Dates: start: 20120820
  2. GLIVEC [Suspect]
     Dosage: 400 mg, daily
     Dates: end: 20121012
  3. EPOPROSTENOL [Concomitant]
     Dosage: 18 ng / kg/ min
  4. EPOPROSTENOL [Concomitant]
     Dosage: 26 ng/kg/min
     Dates: start: 20111221
  5. WARFARIN [Concomitant]
  6. TADALAFIL [Concomitant]
     Dosage: 400 mg, OD
  7. TADALAFIL [Concomitant]
     Dosage: 40 mg, OD
     Dates: start: 20120707
  8. BOSENTAN [Concomitant]
     Dosage: 125 mg, BD
     Dates: start: 20101223
  9. FERROUS SULPHATE [Concomitant]
     Dosage: 200 mg, at night
  10. DIGOXIN [Concomitant]
     Dosage: 62.5 ug, daily
  11. DIGOXIN [Concomitant]
     Dosage: 125 mg, UNK
     Dates: start: 20120313
  12. SPIRONOLACTONE [Concomitant]
     Dosage: 25 mg, daily
  13. SPIRONOLACTONE [Concomitant]
     Dosage: 100 mg, OD
     Dates: start: 20120313
  14. OMACOR [Concomitant]
     Dosage: 1 g, QDS
  15. PARACETAMOL [Concomitant]
     Dosage: as required
  16. BUMETANIDE [Concomitant]
     Dosage: 3 mg, daily
     Dates: start: 20120628

REACTIONS (9)
  - Disease progression [Unknown]
  - Pulmonary congestion [Unknown]
  - Orthopnoea [Recovered/Resolved]
  - Dyspnoea paroxysmal nocturnal [Recovered/Resolved]
  - Dyspnoea [Recovering/Resolving]
  - Oedema peripheral [Unknown]
  - Pulmonary oedema [Unknown]
  - Blood bilirubin increased [Unknown]
  - Haemoglobin decreased [Unknown]
